FAERS Safety Report 13945986 (Version 1)
Quarter: 2017Q3

REPORT INFORMATION
  Report Type: Spontaneous
  Country: JP (occurrence: JP)
  Receive Date: 20170907
  Receipt Date: 20170907
  Transmission Date: 20171128
  Serious: Yes (Other)
  Sender: FDA-Public Use
  Company Number: JP-SUN PHARMACEUTICAL INDUSTRIES LTD-2017RR-149214

PATIENT
  Age: 38 Year
  Sex: Male

DRUGS (6)
  1. CALCIUM FOLINAT [Interacting]
     Active Substance: LEUCOVORIN CALCIUM
     Indication: COLON CANCER METASTATIC
     Dosage: 350 MG
     Route: 065
  2. FLUOROURACIL. [Interacting]
     Active Substance: FLUOROURACIL
     Indication: COLON CANCER METASTATIC
     Dosage: 3700 MG
     Route: 065
  3. TEGAFUR/GIMERACIL/OTERACIL [Interacting]
     Active Substance: GIMERACIL\OTERACIL\TEGAFUR
     Indication: COLON CANCER METASTATIC
     Dosage: 100 MG
     Route: 065
  4. OXALIPLATIN. [Suspect]
     Active Substance: OXALIPLATIN
     Indication: COLON CANCER METASTATIC
     Dosage: 150 MG
     Route: 065
  5. OXALIPLATIN. [Interacting]
     Active Substance: OXALIPLATIN
     Indication: COLON CANCER METASTATIC
     Dosage: 230 MG
     Route: 065
  6. FLUOROURACIL. [Interacting]
     Active Substance: FLUOROURACIL
     Indication: COLON CANCER METASTATIC
     Dosage: 4350 MG
     Route: 065

REACTIONS (4)
  - Dermatitis exfoliative [Recovered/Resolved]
  - Mucosa vesicle [Recovered/Resolved]
  - Drug interaction [Recovered/Resolved]
  - Palmar-plantar erythrodysaesthesia syndrome [Recovered/Resolved]
